FAERS Safety Report 15094960 (Version 2)
Quarter: 2018Q3

REPORT INFORMATION
  Report Type: Spontaneous
  Country: US (occurrence: US)
  Receive Date: 20180701
  Receipt Date: 20180817
  Transmission Date: 20181010
  Serious: No
  Sender: FDA-Public Use
  Company Number: US-NEUROCRINE BIOSCIENCES INC.-2018NBI01891

PATIENT
  Age: 60 Year
  Sex: Female

DRUGS (7)
  1. KLONOPIN [Concomitant]
     Active Substance: CLONAZEPAM
     Indication: ANXIETY
     Route: 048
     Dates: start: 2010
  2. NAPROXEN. [Concomitant]
     Active Substance: NAPROXEN
     Indication: PAIN
     Route: 048
     Dates: start: 201702
  3. OXYBUTYNIN. [Concomitant]
     Active Substance: OXYBUTYNIN CHLORIDE
     Indication: HYPERTONIC BLADDER
     Route: 048
     Dates: start: 2017
  4. INGREZZA [Suspect]
     Active Substance: VALBENAZINE
     Indication: TARDIVE DYSKINESIA
     Route: 048
     Dates: start: 20180126, end: 20180205
  5. INGREZZA [Suspect]
     Active Substance: VALBENAZINE
     Dates: start: 20180206, end: 20180206
  6. RISPERDAL CONSTA [Concomitant]
     Active Substance: RISPERIDONE
     Indication: PSYCHOTIC DISORDER
     Route: 030
     Dates: start: 2010
  7. TRAMADOL. [Concomitant]
     Active Substance: TRAMADOL
     Indication: PAIN
     Route: 048
     Dates: start: 201712

REACTIONS (7)
  - Nausea [Recovered/Resolved]
  - Urinary tract infection [Recovered/Resolved]
  - Back pain [Recovered/Resolved]
  - Urinary retention [Recovered/Resolved]
  - Abdominal discomfort [Recovered/Resolved]
  - Constipation [Recovered/Resolved]
  - Fatigue [Recovered/Resolved]

NARRATIVE: CASE EVENT DATE: 20180127
